FAERS Safety Report 15948865 (Version 6)
Quarter: 2019Q2

REPORT INFORMATION
  Report Type: Report from Study
  Country: US (occurrence: US)
  Receive Date: 20190211
  Receipt Date: 20190610
  Transmission Date: 20190711
  Serious: Yes (Hospitalization)
  Sender: FDA-Public Use
  Company Number: US-ACTELION-A-US2018-183547

PATIENT
  Age: 63 Year
  Sex: Female
  Weight: 116.1 kg

DRUGS (5)
  1. TRACLEER [Suspect]
     Active Substance: BOSENTAN
     Indication: PULMONARY ARTERIAL HYPERTENSION
     Dosage: 125 MG, BID
     Route: 048
  2. TYVASO [Suspect]
     Active Substance: TREPROSTINIL
     Indication: PRODUCT USED FOR UNKNOWN INDICATION
     Dosage: 3 PUFF, Q6HRS
     Route: 055
     Dates: end: 20190427
  3. TADALAFIL. [Concomitant]
     Active Substance: TADALAFIL
  4. TYVASO [Suspect]
     Active Substance: TREPROSTINIL
     Dosage: 2 PUFF, Q6HRS
     Route: 055
  5. ELIQUIS [Concomitant]
     Active Substance: APIXABAN

REACTIONS (12)
  - Nasal congestion [Unknown]
  - Decreased appetite [Unknown]
  - Cough [Unknown]
  - Dyspnoea [Unknown]
  - Headache [Unknown]
  - Abdominal distension [Unknown]
  - Atrial flutter [Unknown]
  - Cardioversion [Unknown]
  - Blood potassium decreased [Unknown]
  - Anxiety [Unknown]
  - Oxygen saturation decreased [Unknown]
  - Sleep disorder [Unknown]

NARRATIVE: CASE EVENT DATE: 201811
